FAERS Safety Report 8997142 (Version 1)
Quarter: 2013Q1

REPORT INFORMATION
  Report Type: Spontaneous
  Country: US (occurrence: ZA)
  Receive Date: 20130104
  Receipt Date: 20130104
  Transmission Date: 20140127
  Serious: Yes (Other)
  Sender: FDA-Public Use
  Company Number: US-ABBOTT-13P-163-1030874-00

PATIENT
  Sex: 0

DRUGS (3)
  1. HUMIRA [Suspect]
     Indication: PRODUCT USED FOR UNKNOWN INDICATION
  2. INFLIXIMAB [Suspect]
     Indication: PRODUCT USED FOR UNKNOWN INDICATION
  3. OTHER MEDICATIONS [Suspect]
     Indication: PRODUCT USED FOR UNKNOWN INDICATION

REACTIONS (10)
  - Short-bowel syndrome [Unknown]
  - Intestinal resection [Unknown]
  - Intestinal resection [Unknown]
  - Intestinal resection [Unknown]
  - Intestinal resection [Unknown]
  - Diarrhoea [Unknown]
  - Perianal erythema [Unknown]
  - Rectal discharge [Unknown]
  - Excoriation [Unknown]
  - Drug ineffective [Unknown]
